FAERS Safety Report 13354844 (Version 1)
Quarter: 2017Q1

REPORT INFORMATION
  Report Type: Spontaneous
  Country: US (occurrence: US)
  Receive Date: 20170321
  Receipt Date: 20170321
  Transmission Date: 20170429
  Serious: No
  Sender: FDA-Public Use
  Company Number: US-ELI_LILLY_AND_COMPANY-US201703003250

PATIENT
  Age: 82 Year
  Sex: Male

DRUGS (9)
  1. HUMULIN R U-500 [Suspect]
     Active Substance: INSULIN HUMAN
     Indication: TYPE 2 DIABETES MELLITUS
     Dosage: 90-100 UNITS, EACH MORNING
     Route: 065
     Dates: start: 20170107
  2. TOPROL XL [Concomitant]
     Active Substance: METOPROLOL SUCCINATE
  3. HUMULIN R U-500 [Suspect]
     Active Substance: INSULIN HUMAN
     Dosage: 100-105 UNITS, QD(AFTERNOON)
     Route: 065
     Dates: start: 20170107
  4. TYLENOL [Concomitant]
     Active Substance: ACETAMINOPHEN
  5. ATORVASTATIN [Concomitant]
     Active Substance: ATORVASTATIN
  6. LOSARTAN                           /01121602/ [Concomitant]
     Active Substance: LOSARTAN
  7. OMEGA 3                            /06852001/ [Concomitant]
     Active Substance: OMEGA-3 FATTY ACIDS
  8. FUROSEMIDE. [Concomitant]
     Active Substance: FUROSEMIDE
  9. FENOFIBRATE. [Concomitant]
     Active Substance: FENOFIBRATE

REACTIONS (1)
  - Visual acuity reduced [Not Recovered/Not Resolved]

NARRATIVE: CASE EVENT DATE: 20170307
